FAERS Safety Report 6647903-5 (Version None)
Quarter: 2010Q1

REPORT INFORMATION
  Report Type: 
  Country: None (occurrence: None)
  Receive Date: 20100324
  Receipt Date: 20100312
  Transmission Date: 20100710
  Serious: Yes (Other)
  Sender: FDA-Public Use
  Company Number: US-WYE-H14107210

PATIENT
  Sex: Female
  Weight: 86.26 kg

DRUGS (4)
  1. PRISTIQ [Suspect]
     Indication: DEPRESSION
     Route: 048
     Dates: start: 20090901
  2. TRILEPTAL [Concomitant]
     Dosage: 300 MG AT NIGHT AND 150 MG IN THE MORNING
  3. KLONOPIN [Concomitant]
  4. RISPERDAL [Concomitant]

REACTIONS (3)
  - AGGRESSION [None]
  - CHILD NEGLECT [None]
  - IRRITABILITY [None]
